FAERS Safety Report 4595942-0 (Version None)
Quarter: 2005Q1

REPORT INFORMATION
  Report Type: 
  Country: None (occurrence: None)
  Receive Date: 20050224
  Receipt Date: 20050207
  Transmission Date: 20050727
  Serious: Yes (Disabling)
  Sender: FDA-Public Use
  Company Number: EWC050242659

PATIENT
  Age: 44 Year
  Sex: Male

DRUGS (3)
  1. ZYPREXA [Suspect]
     Dosage: 10 MG/2 DAY
     Dates: start: 19990101
  2. CHLORPROMAZINE HCL [Concomitant]
  3. CITALOPRAM HYDROBROMIDE [Concomitant]

REACTIONS (4)
  - DIABETES MELLITUS [None]
  - DIABETIC NEPHROPATHY [None]
  - DIABETIC RETINOPATHY [None]
  - NEUROPATHY PERIPHERAL [None]
